FAERS Safety Report 6187405-6 (Version None)
Quarter: 2009Q2

REPORT INFORMATION
  Report Type: 
  Country: None (occurrence: None)
  Receive Date: 20090512
  Receipt Date: 20090511
  Transmission Date: 20091009
  Serious: Yes (Other)
  Sender: FDA-Public Use
  Company Number: D0061588A

PATIENT
  Age: 12 Year
  Sex: Male
  Weight: 54 kg

DRUGS (1)
  1. RELENZA [Suspect]
     Route: 055
     Dates: start: 20090128, end: 20090201

REACTIONS (3)
  - DISORIENTATION [None]
  - GAIT DISTURBANCE [None]
  - HALLUCINATION, VISUAL [None]
